FAERS Safety Report 9011742 (Version 4)
Quarter: 2013Q1

REPORT INFORMATION
  Report Type: Spontaneous
  Country: IT (occurrence: IT)
  Receive Date: 20130114
  Receipt Date: 20130117
  Transmission Date: 20140127
  Serious: Yes (Hospitalization)
  Sender: FDA-Public Use
  Company Number: IT-009507513-1301ITA004136

PATIENT
  Age: 68 Year
  Sex: Female

DRUGS (4)
  1. MONTEGEN [Suspect]
     Dosage: 10 MG, QD
     Route: 048
     Dates: start: 20090101, end: 20121014
  2. XOLAIR [Suspect]
     Indication: ASTHMA
     Dosage: 375 MG, CYCLICAL
     Route: 058
     Dates: start: 20120625, end: 20121012
  3. PANTOPRAZOLE SODIUM [Concomitant]
  4. SPIRIVA [Concomitant]
     Route: 048

REACTIONS (4)
  - Neuropathy peripheral [Recovering/Resolving]
  - Tongue oedema [Recovering/Resolving]
  - Allergic granulomatous angiitis [Recovering/Resolving]
  - Localised oedema [Recovering/Resolving]
